FAERS Safety Report 10043114 (Version 3)
Quarter: 2014Q2

REPORT INFORMATION
  Report Type: Spontaneous
  Country: US (occurrence: US)
  Receive Date: 20140328
  Receipt Date: 20140422
  Transmission Date: 20141212
  Serious: Yes (Hospitalization, Other)
  Sender: FDA-Public Use
  Company Number: US-BIOGENIDEC-2014BI026723

PATIENT
  Age: 80 Year
  Sex: Female

DRUGS (13)
  1. TECFIDERA [Suspect]
     Indication: MULTIPLE SCLEROSIS
     Route: 048
     Dates: start: 20130920
  2. TECFIDERA [Suspect]
     Indication: MULTIPLE SCLEROSIS
     Route: 048
     Dates: start: 20131015, end: 20140401
  3. TECFIDERA [Suspect]
     Indication: MULTIPLE SCLEROSIS
     Route: 048
     Dates: start: 20140304
  4. AMITRIPTYLINE HCL [Concomitant]
  5. ASPIRIN [Concomitant]
  6. CALCIUM 500 +D [Concomitant]
  7. COLACE [Concomitant]
  8. FERROUS SULFATE [Concomitant]
  9. FOSAMAX [Concomitant]
  10. LOVASTATIN [Concomitant]
  11. MAVIK [Concomitant]
  12. MAXZIDE [Concomitant]
  13. PROVENTIL HFA [Concomitant]

REACTIONS (4)
  - Diverticulitis [Unknown]
  - Staphylococcal infection [Unknown]
  - Hip fracture [Unknown]
  - Leukocytosis [Unknown]
